FAERS Safety Report 25130180 (Version 2)
Quarter: 2025Q2

REPORT INFORMATION
  Report Type: Spontaneous
  Country: US (occurrence: US)
  Receive Date: 20250327
  Receipt Date: 20250404
  Transmission Date: 20250717
  Serious: No
  Sender: MYLAN
  Company Number: US-MYLANLABS-2025M1024817

PATIENT
  Age: 84 Year
  Sex: Male
  Weight: 96.16 kg

DRUGS (12)
  1. LATANOPROST [Suspect]
     Active Substance: LATANOPROST
     Indication: Product used for unknown indication
     Dosage: 1 GTT DROPS, PM (1 DROP EACH EYE AT BEDTIME)
     Dates: start: 20250316
  2. LATANOPROST [Suspect]
     Active Substance: LATANOPROST
     Dosage: 1 GTT DROPS, PM (1 DROP EACH EYE AT BEDTIME)
     Route: 047
     Dates: start: 20250316
  3. LATANOPROST [Suspect]
     Active Substance: LATANOPROST
     Dosage: 1 GTT DROPS, PM (1 DROP EACH EYE AT BEDTIME)
     Route: 047
     Dates: start: 20250316
  4. LATANOPROST [Suspect]
     Active Substance: LATANOPROST
     Dosage: 1 GTT DROPS, PM (1 DROP EACH EYE AT BEDTIME)
     Dates: start: 20250316
  5. PREGABALIN [Concomitant]
     Active Substance: PREGABALIN
     Indication: Neuropathy peripheral
  6. PREGABALIN [Concomitant]
     Active Substance: PREGABALIN
     Route: 065
  7. PREGABALIN [Concomitant]
     Active Substance: PREGABALIN
     Route: 065
  8. PREGABALIN [Concomitant]
     Active Substance: PREGABALIN
  9. BUDESONIDE [Concomitant]
     Active Substance: BUDESONIDE
     Indication: Benign prostatic hyperplasia
  10. BUDESONIDE [Concomitant]
     Active Substance: BUDESONIDE
     Route: 065
  11. BUDESONIDE [Concomitant]
     Active Substance: BUDESONIDE
     Route: 065
  12. BUDESONIDE [Concomitant]
     Active Substance: BUDESONIDE

REACTIONS (4)
  - Eyelid irritation [Not Recovered/Not Resolved]
  - Foreign body sensation in eyes [Not Recovered/Not Resolved]
  - Eye irritation [Unknown]
  - Eye pain [Unknown]

NARRATIVE: CASE EVENT DATE: 20250319
